FAERS Safety Report 17430863 (Version 1)
Quarter: 2020Q1

REPORT INFORMATION
  Report Type: Report from Study
  Country: CA (occurrence: CA)
  Receive Date: 20200218
  Receipt Date: 20200218
  Transmission Date: 20200409
  Serious: Yes (Hospitalization)
  Sender: FDA-Public Use
  Company Number: CA-PFIZER INC-2018147722

PATIENT
  Age: 38 Year
  Sex: Male

DRUGS (11)
  1. ENTYVIO [Suspect]
     Active Substance: VEDOLIZUMAB
     Indication: COLITIS ULCERATIVE
     Dosage: 300 MG, UNK
     Route: 042
     Dates: start: 20160414
  2. SYNTHROID [Concomitant]
     Active Substance: LEVOTHYROXINE SODIUM
     Dosage: 100 UG, 1X/DAY (QD)
     Route: 048
  3. ENTYVIO [Suspect]
     Active Substance: VEDOLIZUMAB
     Dosage: 300 MG, MONTHLY (Q4WEEKS)
     Route: 042
     Dates: start: 20170527
  4. ATIVAN [Concomitant]
     Active Substance: LORAZEPAM
     Dosage: 0.5 MG, UNK
     Route: 048
  5. ADVAGRAF [Concomitant]
     Active Substance: TACROLIMUS
     Dosage: 5 MG, 1X/DAY (QD)
     Route: 048
  6. ENTYVIO [Suspect]
     Active Substance: VEDOLIZUMAB
     Dosage: 300 MG, MONTHLY (Q4WEEKS)
     Route: 042
  7. ENTYVIO [Suspect]
     Active Substance: VEDOLIZUMAB
     Dosage: 300 MG, MONTHLY (Q4WEEKS)
     Route: 042
  8. TYLENOL WITH CODEINE [Concomitant]
     Active Substance: ACETAMINOPHEN\CODEINE PHOSPHATE
     Dosage: UNK
     Route: 048
  9. PANTOLOC [Suspect]
     Active Substance: PANTOPRAZOLE SODIUM
     Dosage: 40 MG, AS NEEDED (PRN)
     Route: 048
     Dates: start: 2012
  10. ZOPICLONE [Concomitant]
     Active Substance: ZOPICLONE
     Dosage: 7.5 MG, UNK
     Route: 048
  11. ASACOL [Concomitant]
     Active Substance: MESALAMINE
     Dosage: 1200 MG, 3X/DAY (TID)
     Route: 048

REACTIONS (4)
  - Influenza [Recovered/Resolved]
  - Nasopharyngitis [Recovering/Resolving]
  - Pyrexia [Recovered/Resolved]
  - Migraine [Unknown]

NARRATIVE: CASE EVENT DATE: 2018
